FAERS Safety Report 7064581-4 (Version None)
Quarter: 2010Q4

REPORT INFORMATION
  Report Type: 
  Country: None (occurrence: None)
  Receive Date: 20101022
  Receipt Date: 20101022
  Transmission Date: 20110411
  Serious: No
  Sender: FDA-Public Use
  Company Number: None

PATIENT
  Sex: Female
  Weight: 56.6996 kg

DRUGS (1)
  1. VOLTAREN [Suspect]

REACTIONS (4)
  - CHEST PAIN [None]
  - DYSPNOEA [None]
  - NECK PAIN [None]
  - PAIN IN EXTREMITY [None]
